FAERS Safety Report 25699653 (Version 1)
Quarter: 2025Q3

REPORT INFORMATION
  Report Type: Report from Study
  Country: CA (occurrence: CA)
  Receive Date: 20250819
  Receipt Date: 20250819
  Transmission Date: 20251021
  Serious: Yes (Death, Other)
  Sender: ROCHE
  Company Number: CA-ROCHE-10000367116

PATIENT
  Age: 66 Year
  Sex: Female

DRUGS (1)
  1. VABYSMO [Suspect]
     Active Substance: FARICIMAB-SVOA
     Indication: Diabetic retinal oedema
     Dosage: MORE DOSAGE INFORMATION- OU MONTHLY AS NEEDED
     Route: 050
     Dates: start: 20241018

REACTIONS (2)
  - Neoplasm malignant [Unknown]
  - Death [Fatal]
